FAERS Safety Report 8457182-4 (Version None)
Quarter: 2012Q2

REPORT INFORMATION
  Report Type: 
  Country: None (occurrence: None)
  Receive Date: 20120621
  Receipt Date: 20120611
  Transmission Date: 20120825
  Serious: Yes (Other)
  Sender: FDA-Public Use
  Company Number: JP-B.I. PHARMACEUTICALS,INC./RIDGEFIELD-2012-EU-03085GD

PATIENT
  Sex: Male

DRUGS (3)
  1. PRAMIPEXOLE [Suspect]
     Indication: PARKINSON'S DISEASE
     Dosage: 4 MG
  2. LEVODOPA/BENSERAZIDE [Suspect]
     Indication: PARKINSON'S DISEASE
     Dosage: LEVODOPA 400MG/BENSERAZIDE 100MG
  3. PERGOLIDE MESYLATE [Suspect]
     Indication: PARKINSON'S DISEASE
     Dosage: 4 MG

REACTIONS (3)
  - HYPERSEXUALITY [None]
  - PATHOLOGICAL GAMBLING [None]
  - COMMUNICATION DISORDER [None]
